FAERS Safety Report 9672402 (Version 1)
Quarter: 2013Q4

REPORT INFORMATION
  Report Type: Spontaneous
  Country: US (occurrence: None)
  Receive Date: 20131105
  Receipt Date: 20131105
  Transmission Date: 20140711
  Serious: Yes (Hospitalization)
  Sender: FDA-Public Use
  Company Number: 2013RN000023

PATIENT
  Age: 73 Year
  Sex: Female

DRUGS (6)
  1. ZOVIRAX [Suspect]
     Route: 048
     Dates: start: 2010
  2. DENOSUMAB (DENOSUMAB) (RANMARK)) [Suspect]
     Indication: FIBROMYALGIA
     Dosage: 60 MG, CYCLICALLY
     Dates: start: 20130430
  3. DENOSUMAB (DENOSUMAB) (RANMARK)) [Suspect]
     Indication: OSTEOPOROSIS
     Dosage: 60 MG, CYCLICALLY
     Dates: start: 20130430
  4. ATENOLOL (ATENOLOL) [Suspect]
     Route: 048
     Dates: start: 2011
  5. CELECOXIB (CELECOXIB) [Suspect]
     Indication: NECK PAIN
  6. OSCAL 500 + D (CALCIUM, ERGOCALCIFEROL) [Suspect]
     Dosage: 2 TABLETS, OREAL
     Route: 048
     Dates: start: 2003

REACTIONS (2)
  - Road traffic accident [None]
  - Wrist fracture [None]
